FAERS Safety Report 5863721-X (Version None)
Quarter: 2008Q3

REPORT INFORMATION
  Report Type: 
  Country: None (occurrence: None)
  Receive Date: 20080818
  Receipt Date: 20070708
  Transmission Date: 20090109
  Serious: No
  Sender: FDA-Public Use
  Company Number: 20073916

PATIENT
  Age: 43 Year
  Sex: Female

DRUGS (2)
  1. LIORESAL [Suspect]
     Indication: MUSCLE SPASTICITY
     Dosage: 127.1 MCG, DAILY, INTRATHECAL
     Route: 037
  2. MORPHINE [Concomitant]

REACTIONS (3)
  - DRUG INEFFECTIVE [None]
  - HYPERTONIA [None]
  - NERVOUSNESS [None]
